FAERS Safety Report 6715491-0 (Version None)
Quarter: 2010Q2

REPORT INFORMATION
  Report Type: 
  Country: None (occurrence: None)
  Receive Date: 20100507
  Receipt Date: 20100429
  Transmission Date: 20101027
  Serious: Yes (Death, Hospitalization, Other)
  Sender: FDA-Public Use
  Company Number: US-ROCHE-685616

PATIENT
  Sex: Male
  Weight: 62.6 kg

DRUGS (1)
  1. CAPECITABINE [Suspect]
     Indication: COLORECTAL CANCER
     Dosage: FOR 14 DAYS, OTHER INDICATION: PANCREATIC CANCER.
     Route: 048
     Dates: start: 20091111, end: 20100113

REACTIONS (5)
  - ASCITES [None]
  - DEATH [None]
  - DECREASED APPETITE [None]
  - SOMNOLENCE [None]
  - TRANSFUSION [None]
